FAERS Safety Report 23495791 (Version 1)
Quarter: 2024Q1

REPORT INFORMATION
  Report Type: Spontaneous
  Country: US (occurrence: US)
  Receive Date: 20240207
  Receipt Date: 20240207
  Transmission Date: 20240410
  Serious: No
  Sender: FDA-Public Use
  Company Number: US-BAUSCH-BL-2024-001553

PATIENT
  Age: 25 Year
  Sex: Female

DRUGS (5)
  1. CARDIZEM CD [Interacting]
     Active Substance: DILTIAZEM HYDROCHLORIDE
     Indication: Product used for unknown indication
     Route: 065
  2. CARDIZEM CD [Interacting]
     Active Substance: DILTIAZEM HYDROCHLORIDE
     Dosage: INCREASED TO 2 CAPSULES TWICE DAILY
     Route: 065
  3. LUPKYNIS [Suspect]
     Active Substance: VOCLOSPORIN
     Indication: Lupus nephritis
     Dosage: 23.7 MG TWICE DAILY
     Route: 048
     Dates: start: 20230223
  4. LUPKYNIS [Suspect]
     Active Substance: VOCLOSPORIN
     Dosage: 15.8 MG QAM AND 7.9 MG QPM
     Route: 048
     Dates: start: 20230223
  5. LUPKYNIS [Suspect]
     Active Substance: VOCLOSPORIN
     Route: 048
     Dates: start: 20230223

REACTIONS (2)
  - Abdominal discomfort [Unknown]
  - Drug interaction [Unknown]
